FAERS Safety Report 5300419-0 (Version None)
Quarter: 2007Q2

REPORT INFORMATION
  Report Type: 
  Country: None (occurrence: None)
  Receive Date: 20070411
  Receipt Date: 20070328
  Transmission Date: 20071010
  Serious: Yes (Other)
  Sender: FDA-Public Use
  Company Number: TNZFR200700036

PATIENT
  Sex: Female

DRUGS (1)
  1. INNOHEP [Suspect]
     Dosage: SUBCUTANEOUS
     Route: 058

REACTIONS (1)
  - SHOCK [None]
